FAERS Safety Report 10133929 (Version 2)
Quarter: 2014Q2

REPORT INFORMATION
  Report Type: Spontaneous
  Country: US (occurrence: US)
  Receive Date: 20140428
  Receipt Date: 20140428
  Transmission Date: 20141212
  Serious: Yes (Other)
  Sender: FDA-Public Use
  Company Number: US-ASTELLAS-2014US003031

PATIENT
  Age: 42 Year
  Sex: Female

DRUGS (2)
  1. LEXISCAN [Suspect]
     Indication: PRODUCT USED FOR UNKNOWN INDICATION
     Route: 042
     Dates: start: 20140317, end: 20140317
  2. UNSPECIFIED TRADITIONAL MEDICINE [Concomitant]
     Indication: CONVULSION
     Route: 065

REACTIONS (1)
  - Convulsion [Recovered/Resolved]
